FAERS Safety Report 9486624 (Version 1)
Quarter: 2013Q3

REPORT INFORMATION
  Report Type: Spontaneous
  Country: FR (occurrence: FR)
  Receive Date: 20130829
  Receipt Date: 20130829
  Transmission Date: 20140515
  Serious: Yes (Hospitalization, Other)
  Sender: FDA-Public Use
  Company Number: FR-PFIZER INC-2013243325

PATIENT
  Age: 74 Year
  Sex: Male
  Weight: 80 kg

DRUGS (5)
  1. ADRIBLASTINE [Suspect]
     Indication: HEPATOCELLULAR CARCINOMA
     Dosage: 60 MG, CYCLIC
     Route: 042
     Dates: start: 20130716, end: 20130716
  2. VANCOMYCIN [Concomitant]
     Dosage: 2 G, 1X/DAY
     Dates: start: 20130717, end: 20130720
  3. AUGMENTIN [Concomitant]
     Dosage: 1 G THREE TIMES A DAY
     Route: 042
     Dates: start: 20130720, end: 20130723
  4. ORBENINE [Concomitant]
     Dosage: 150 MG/KG CORRESPONDING TO 9 G/DAY
     Dates: start: 20130723, end: 20130724
  5. ORBENINE [Concomitant]
     Dosage: 3 G
     Dates: start: 20130725, end: 20130725

REACTIONS (5)
  - Agranulocytosis [Recovered/Resolved]
  - Staphylococcal sepsis [Unknown]
  - Anaemia [Recovered/Resolved]
  - Leukopenia [Recovered/Resolved]
  - Thrombocytopenia [Recovered/Resolved]
